FAERS Safety Report 5310145-X (Version None)
Quarter: 2007Q2

REPORT INFORMATION
  Report Type: 
  Country: None (occurrence: None)
  Receive Date: 20070423
  Receipt Date: 20070417
  Transmission Date: 20071010
  Serious: Yes (Hospitalization)
  Sender: FDA-Public Use
  Company Number: S07-FRA-00981-01

PATIENT
  Age: 27 Year
  Sex: Female

DRUGS (3)
  1. ESCITALOPRAM [Suspect]
     Indication: DEPRESSION
     Dates: start: 20070123
  2. XANAX (ESCITALOPRAM) [Concomitant]
  3. EFFEXOR [Concomitant]

REACTIONS (13)
  - ALANINE AMINOTRANSFERASE INCREASED [None]
  - ARTERITIS [None]
  - BRAIN OEDEMA [None]
  - CEREBRAL HAEMATOMA [None]
  - CONJUNCTIVITIS [None]
  - HEMIANOPIA [None]
  - HEMIPARESIS [None]
  - MENINGORRHAGIA [None]
  - PROTEIN TOTAL INCREASED [None]
  - PUPILS UNEQUAL [None]
  - URINARY TRACT INFECTION [None]
  - URINE ALCOHOL TEST POSITIVE [None]
  - VASCULITIS CEREBRAL [None]
